FAERS Safety Report 25569755 (Version 2)
Quarter: 2025Q3

REPORT INFORMATION
  Report Type: Spontaneous
  Country: EU (occurrence: EU)
  Receive Date: 20250717
  Receipt Date: 20250801
  Transmission Date: 20251021
  Serious: Yes (Life-Threatening, Hospitalization)
  Sender: TEVA
  Company Number: None

PATIENT
  Age: 47 Year
  Sex: Male
  Weight: 120 kg

DRUGS (7)
  1. AMLODIPINE [Suspect]
     Active Substance: AMLODIPINE BESYLATE
     Indication: Hypertension
     Route: 048
     Dates: start: 20250403, end: 20250614
  2. BISOPROLOL [Concomitant]
     Active Substance: BISOPROLOL
     Indication: Hypertension
     Route: 048
     Dates: start: 202505
  3. ZOPICLONE [Concomitant]
     Active Substance: ZOPICLONE
     Indication: Sleep disorder
     Route: 048
  4. RISPERIDONE [Concomitant]
     Active Substance: RISPERIDONE
     Indication: Depression
     Route: 048
  5. ATORVASTATIN [Concomitant]
     Active Substance: ATORVASTATIN
     Indication: Hypercholesterolaemia
     Route: 065
     Dates: start: 202503
  6. RAMIPRIL [Suspect]
     Active Substance: RAMIPRIL
     Indication: Hypertension
     Route: 048
     Dates: start: 20240404, end: 20250614
  7. CITALOPRAM [Concomitant]
     Active Substance: CITALOPRAM
     Indication: Depression
     Route: 048

REACTIONS (1)
  - Angioedema [Recovered/Resolved]

NARRATIVE: CASE EVENT DATE: 20250612
